FAERS Safety Report 6074744-2 (Version None)
Quarter: 2009Q1

REPORT INFORMATION
  Report Type: 
  Country: None (occurrence: None)
  Receive Date: 20090212
  Receipt Date: 20090204
  Transmission Date: 20090719
  Serious: Yes (Hospitalization)
  Sender: FDA-Public Use
  Company Number: US-WYE-H08095709

PATIENT
  Sex: Female
  Weight: 59.02 kg

DRUGS (5)
  1. ROBITUSSIN [Suspect]
     Indication: NASOPHARYNGITIS
     Dosage: UNKNOWN
     Route: 048
     Dates: start: 20080101, end: 20080101
  2. ROBITUSSIN [Interacting]
     Indication: NASAL CONGESTION
  3. LAMICTAL [Concomitant]
     Indication: CONVULSION
     Dosage: UNKNOWN
     Route: 048
  4. LAMICTAL [Concomitant]
     Indication: BIPOLAR DISORDER
  5. GEODON [Interacting]
     Indication: BIPOLAR DISORDER
     Dosage: 200 MG AT BEDTIME WITHOUT FOOD
     Route: 048

REACTIONS (3)
  - DRUG INTERACTION [None]
  - INSOMNIA [None]
  - MANIA [None]
